FAERS Safety Report 21789445 (Version 1)
Quarter: 2022Q4

REPORT INFORMATION
  Report Type: Spontaneous
  Country: BR (occurrence: BR)
  Receive Date: 20221228
  Receipt Date: 20221228
  Transmission Date: 20230113
  Serious: Yes (Life-Threatening, Hospitalization, Other)
  Sender: FDA-Public Use
  Company Number: BR-009507513-2212BRA009431

PATIENT
  Age: 47 Year
  Sex: Female
  Weight: 95 kg

DRUGS (1)
  1. BRIDION [Suspect]
     Active Substance: SUGAMMADEX
     Indication: Prophylaxis
     Dosage: 200 MG (SINGLE DOSE)
     Route: 042
     Dates: start: 20221220, end: 20221220

REACTIONS (3)
  - Angioedema [Recovered/Resolved]
  - Petechiae [Recovered/Resolved]
  - Oxygen saturation decreased [Recovered/Resolved]

NARRATIVE: CASE EVENT DATE: 20221220
